FAERS Safety Report 22855194 (Version 3)
Quarter: 2024Q2

REPORT INFORMATION
  Report Type: Report from Study
  Country: US (occurrence: US)
  Receive Date: 20230823
  Receipt Date: 20240416
  Transmission Date: 20240715
  Serious: Yes (Other)
  Sender: FDA-Public Use
  Company Number: US-ABBVIE-5373619

PATIENT
  Age: 80 Year
  Sex: Female
  Weight: 58.059 kg

DRUGS (6)
  1. SKYRIZI [Suspect]
     Active Substance: RISANKIZUMAB-RZAA
     Indication: Crohn^s disease
     Route: 058
     Dates: start: 20230127
  2. SKYRIZI [Suspect]
     Active Substance: RISANKIZUMAB-RZAA
     Route: 058
     Dates: start: 20230127
  3. VITAMIN D [Concomitant]
     Active Substance: VITAMIN D NOS
     Indication: Vitamin supplementation
  4. VITAMIN B12 [Concomitant]
     Active Substance: CYANOCOBALAMIN
     Indication: Vitamin supplementation
  5. SKYRIZI [Suspect]
     Active Substance: RISANKIZUMAB-RZAA
     Indication: Crohn^s disease
     Route: 042
     Dates: start: 20220908, end: 202212
  6. PROLIA [Suspect]
     Active Substance: DENOSUMAB
     Indication: Osteoporosis
     Route: 065

REACTIONS (10)
  - Hip fracture [Recovering/Resolving]
  - C-reactive protein increased [Unknown]
  - Blood parathyroid hormone increased [Unknown]
  - Gait inability [Recovering/Resolving]
  - Fall [Unknown]
  - Peripheral swelling [Recovering/Resolving]
  - Hip fracture [Recovered/Resolved]
  - Nephrolithiasis [Recovered/Resolved]
  - Osteoporosis [Unknown]
  - Head injury [Unknown]

NARRATIVE: CASE EVENT DATE: 20230127
